FAERS Safety Report 9404905 (Version 3)
Quarter: 2013Q4

REPORT INFORMATION
  Report Type: Spontaneous
  Country: FR (occurrence: FR)
  Receive Date: 20130717
  Receipt Date: 20131126
  Transmission Date: 20140711
  Serious: Yes (Hospitalization)
  Sender: FDA-Public Use
  Company Number: FR-UCBSA-091370

PATIENT
  Age: 83 Year
  Sex: Male

DRUGS (10)
  1. CIMZIA [Suspect]
     Indication: RHEUMATOID ARTHRITIS
     Dosage: UNKNOWN DOSE; ONE INJECTION 2 WEEKS
     Route: 058
     Dates: start: 20130308, end: 20130603
  2. AMLODIPINE [Concomitant]
     Dosage: 5 MG DAILY
     Route: 048
  3. SALAZOPYRINE [Concomitant]
     Dosage: 2 GM DAILY
     Route: 048
     Dates: start: 201211, end: 201305
  4. PLAVIX [Concomitant]
     Dosage: 75 MG DAILY
  5. KENZEN [Concomitant]
     Dosage: 16 MG DAILY; SCORED TABLET
     Route: 048
  6. INIPOMP [Concomitant]
     Dosage: 20 MG DAILY; GASTRO RESISTANT TABLET
     Route: 048
  7. FORADIL [Concomitant]
     Dosage: 12 MCG DAILY
     Route: 055
  8. MIFLONIL [Concomitant]
     Dosage: 200 MCG
     Route: 055
  9. NASACORT [Concomitant]
     Dosage: 55 MCG PER DOSE
     Route: 045
  10. ENBREL [Concomitant]
     Dosage: UNKNOWN DOSE
     Dates: start: 2013, end: 20130802

REACTIONS (4)
  - Dermatitis psoriasiform [Recovered/Resolved]
  - Pustular psoriasis [Recovered/Resolved]
  - Pain [Unknown]
  - Asthenia [Unknown]
